FAERS Safety Report 9604532 (Version 1)
Quarter: 2013Q4

REPORT INFORMATION
  Report Type: Spontaneous
  Country: NO (occurrence: NO)
  Receive Date: 20131008
  Receipt Date: 20131008
  Transmission Date: 20140711
  Serious: Yes (Other)
  Sender: FDA-Public Use
  Company Number: NO-ASTRAZENECA-2013SE72538

PATIENT
  Age: 85 Year
  Sex: Female

DRUGS (2)
  1. CANDESARTAN [Suspect]
     Indication: HYPERTENSION
     Dosage: ATACAND
     Route: 048
     Dates: start: 2004, end: 2006
  2. CANDESARTAN [Suspect]
     Indication: HYPERTENSION
     Dosage: GENERIC
     Route: 048
     Dates: start: 2006, end: 2006

REACTIONS (3)
  - Hypersensitivity [Recovered/Resolved]
  - Respiratory tract inflammation [Recovered/Resolved]
  - Swollen tongue [Recovered/Resolved]
